FAERS Safety Report 12925562 (Version 2)
Quarter: 2016Q4

REPORT INFORMATION
  Report Type: Report from Study
  Country: DE (occurrence: DE)
  Receive Date: 20161109
  Receipt Date: 20161123
  Transmission Date: 20170207
  Serious: Yes (Other)
  Sender: FDA-Public Use
  Company Number: DE-INCYTE CORPORATION-2016IN006906

PATIENT
  Sex: Female
  Weight: 86 kg

DRUGS (14)
  1. SIMVASTATIN. [Concomitant]
     Active Substance: SIMVASTATIN
     Indication: HYPERLIPIDAEMIA
     Dosage: 20 MG, QD
     Route: 065
     Dates: start: 20131126
  2. TORASEMIDE [Concomitant]
     Active Substance: TORSEMIDE
     Indication: HYPERTENSION
     Dosage: 20 MG, QD
     Route: 065
     Dates: start: 20150305
  3. PANTOPRAZOLE [Concomitant]
     Active Substance: PANTOPRAZOLE SODIUM
     Indication: PRODUCT USED FOR UNKNOWN INDICATION
     Dosage: 20 MG, QD
     Route: 065
     Dates: start: 20131126
  4. ENALAPRIL [Concomitant]
     Active Substance: ENALAPRIL
     Indication: HYPERTENSION
     Dosage: 20 MG, UNK
     Route: 065
  5. INCB018424 [Suspect]
     Active Substance: RUXOLITINIB
     Dosage: 2 DF, QD (15 MG)
     Route: 048
     Dates: start: 20140430, end: 20160718
  6. BICANORM [Concomitant]
     Active Substance: SODIUM BICARBONATE
     Indication: METABOLIC ACIDOSIS
     Dosage: 3 DF, QD
     Route: 065
     Dates: start: 20150305
  7. L-THYROX [Concomitant]
     Active Substance: LEVOTHYROXINE SODIUM
     Indication: HYPOTHYROIDISM
     Dosage: 50 UG, QD
     Route: 065
     Dates: start: 20131126
  8. ASPIRIN. [Concomitant]
     Active Substance: ASPIRIN
     Indication: PRODUCT USED FOR UNKNOWN INDICATION
     Dosage: 100 MG, QD
     Route: 065
     Dates: start: 20110519
  9. INCB018424 [Suspect]
     Active Substance: RUXOLITINIB
     Indication: MYELOFIBROSIS
     Dosage: 2 DF, QD (15 MG)
     Route: 048
     Dates: start: 20140123, end: 20140421
  10. INCB018424 [Suspect]
     Active Substance: RUXOLITINIB
     Dosage: 25 MG, QD
     Route: 048
     Dates: start: 20160719, end: 20160724
  11. INCB018424 [Suspect]
     Active Substance: RUXOLITINIB
     Dosage: 2 DF, QD (15 MG)
     Route: 048
     Dates: start: 20160725
  12. METOPROLOL SUCCINATE. [Concomitant]
     Active Substance: METOPROLOL SUCCINATE
     Indication: HYPERTENSION
     Dosage: 47.5 MG, QD
     Route: 065
  13. ALLOPURINOL. [Concomitant]
     Active Substance: ALLOPURINOL
     Indication: HYPERURICAEMIA
     Dosage: 170 MG, QD
     Route: 065
     Dates: start: 20111121
  14. HCT [Concomitant]
     Active Substance: HYDROCHLOROTHIAZIDE
     Indication: HYPERTENSION
     Dosage: 12.5 MG, UNK
     Route: 065
     Dates: end: 20150304

REACTIONS (1)
  - Leukopenia [Recovered/Resolved]

NARRATIVE: CASE EVENT DATE: 20160719
